FAERS Safety Report 16310097 (Version 1)
Quarter: 2019Q2

REPORT INFORMATION
  Report Type: Spontaneous
  Country: US (occurrence: US)
  Receive Date: 20190514
  Receipt Date: 20190514
  Transmission Date: 20190711
  Serious: No
  Sender: FDA-Public Use
  Company Number: US-ASTRAZENECA-2019SE60393

PATIENT
  Age: 25804 Day
  Sex: Male
  Weight: 133.8 kg

DRUGS (2)
  1. BYDUREON BCISE [Suspect]
     Active Substance: EXENATIDE
     Indication: TYPE 2 DIABETES MELLITUS
     Route: 058
     Dates: start: 2018, end: 201902
  2. BYDUREON [Suspect]
     Active Substance: EXENATIDE
     Indication: TYPE 2 DIABETES MELLITUS
     Route: 058
     Dates: start: 201902

REACTIONS (3)
  - Pain in extremity [Recovering/Resolving]
  - Skin discolouration [Recovering/Resolving]
  - Product preparation issue [Unknown]

NARRATIVE: CASE EVENT DATE: 20190414
